FAERS Safety Report 14828290 (Version 13)
Quarter: 2020Q4

REPORT INFORMATION
  Report Type: Spontaneous
  Country: DE (occurrence: DE)
  Receive Date: 20180430
  Receipt Date: 20201102
  Transmission Date: 20210113
  Serious: Yes (Hospitalization)
  Sender: FDA-Public Use
  Company Number: DE-JNJFOC-20180430204

PATIENT
  Age: 62 Year
  Sex: Female
  Weight: 45 kg

DRUGS (59)
  1. NOVALGIN (METAMIZOLE SODIUM) [Interacting]
     Active Substance: METAMIZOLE SODIUM
     Indication: PRODUCT USED FOR UNKNOWN INDICATION
     Dosage: 30 TROPFEN
     Route: 048
  2. LACTULOSE. [Interacting]
     Active Substance: LACTULOSE
     Route: 048
  3. LEVOPAR [Interacting]
     Active Substance: BENSERAZIDE\LEVODOPA
     Dosage: 100 MG, BID
     Route: 048
  4. MAGNESIUM HYDROGEN ASPARTATE [Suspect]
     Active Substance: MAGNESIUM ASPARTATE ANHYDROUS
     Indication: PRODUCT USED FOR UNKNOWN INDICATION
     Dosage: 2 DF, QD
     Route: 048
  5. EZETROL [Suspect]
     Active Substance: EZETIMIBE
     Indication: PRODUCT USED FOR UNKNOWN INDICATION
     Route: 048
  6. SPIRONOLACTON [Suspect]
     Active Substance: SPIRONOLACTONE
     Indication: PRODUCT USED FOR UNKNOWN INDICATION
     Route: 048
  7. PENTAZOCINE HYDROCHLORIDE [Suspect]
     Active Substance: PENTAZOCINE HYDROCHLORIDE
     Route: 048
  8. HYDROCHLOROTHIAZIDE. [Suspect]
     Active Substance: HYDROCHLOROTHIAZIDE
     Indication: PRODUCT USED FOR UNKNOWN INDICATION
     Dosage: 25 MG, QD
     Route: 048
  9. EZETIMIBE. [Suspect]
     Active Substance: EZETIMIBE
     Indication: PRODUCT USED FOR UNKNOWN INDICATION
     Route: 048
  10. KALINOR                            /00031402/ [Suspect]
     Active Substance: POTASSIUM CHLORIDE
     Indication: PRODUCT USED FOR UNKNOWN INDICATION
     Route: 048
  11. LACTULOSE. [Interacting]
     Active Substance: LACTULOSE
     Indication: PRODUCT USED FOR UNKNOWN INDICATION
     Dosage: 1 DF, QD
     Route: 048
  12. VIANI [Suspect]
     Active Substance: FLUTICASONE PROPIONATE\SALMETEROL XINAFOATE
     Indication: PRODUCT USED FOR UNKNOWN INDICATION
     Dosage: 50OR500 MCG?2 DF, QD
     Route: 055
  13. PANTOZOL [Suspect]
     Active Substance: PANTOPRAZOLE SODIUM
     Indication: PRODUCT USED FOR UNKNOWN INDICATION
     Route: 048
  14. BENSERAZIDE HYDROCHLORIDE [Suspect]
     Active Substance: BENSERAZIDE HYDROCHLORIDE
     Indication: PRODUCT USED FOR UNKNOWN INDICATION
     Dosage: 1-0-2.5-0
     Route: 048
  15. SPIRONOLACTONE. [Suspect]
     Active Substance: SPIRONOLACTONE
     Dosage: 200 MG, BID
     Route: 048
  16. AMBROXOL [Suspect]
     Active Substance: AMBROXOL
     Indication: PRODUCT USED FOR UNKNOWN INDICATION
     Dosage: ADDITIONAL INFO: MISUSE,MEDICATION ERROR
     Route: 048
  17. NOVALGIN (METAMIZOLE SODIUM) [Interacting]
     Active Substance: METAMIZOLE SODIUM
     Route: 048
  18. VIANI [Suspect]
     Active Substance: FLUTICASONE PROPIONATE\SALMETEROL XINAFOATE
     Dosage: 1 DF, QD
     Route: 055
  19. IMUREK [Suspect]
     Active Substance: AZATHIOPRINE
     Indication: PRODUCT USED FOR UNKNOWN INDICATION
     Dosage: 50 MG, QD
     Route: 048
  20. METAMIZOLE SODIUM [Suspect]
     Active Substance: METAMIZOLE SODIUM
     Indication: PRODUCT USED FOR UNKNOWN INDICATION
     Dosage: 30 DROP, TID
     Route: 048
  21. SPIRIVA [Suspect]
     Active Substance: TIOTROPIUM BROMIDE MONOHYDRATE
     Route: 055
  22. SPIRIVA [Suspect]
     Active Substance: TIOTROPIUM BROMIDE MONOHYDRATE
     Route: 055
  23. SPIRONOLACTON [Suspect]
     Active Substance: SPIRONOLACTONE
     Route: 048
  24. RAPAMUNE [Interacting]
     Active Substance: SIROLIMUS
     Indication: PRODUCT USED FOR UNKNOWN INDICATION
     Route: 048
  25. FUROSEMIDE. [Interacting]
     Active Substance: FUROSEMIDE
     Route: 048
  26. MAGNESIUM HYDROGEN ASPARTATE [Suspect]
     Active Substance: MAGNESIUM ASPARTATE ANHYDROUS
     Route: 048
  27. SPIRONOLACTONE. [Suspect]
     Active Substance: SPIRONOLACTONE
     Dosage: 100 MG, QD
     Route: 048
  28. FLUTICASONE PROPIONATE W/SALMETEROL XINAFOATE [Suspect]
     Active Substance: FLUTICASONE PROPIONATE\SALMETEROL XINAFOATE
     Indication: PRODUCT USED FOR UNKNOWN INDICATION
     Dosage: 2 DF, QD
     Route: 055
  29. FUROSEMIDE. [Interacting]
     Active Substance: FUROSEMIDE
     Route: 048
  30. MAGNESIUM HYDROGEN ASPARTATE [Suspect]
     Active Substance: MAGNESIUM ASPARTATE ANHYDROUS
     Route: 048
  31. PARACETAMOL W/PENTAZOCINE HYDROCHLORIDE [Suspect]
     Active Substance: ACETAMINOPHEN\PENTAZOCINE HYDROCHLORIDE
     Indication: PRODUCT USED FOR UNKNOWN INDICATION
     Dosage: 90 DF, QD
     Route: 048
  32. SPIRONOLACTON [Suspect]
     Active Substance: SPIRONOLACTONE
     Route: 048
  33. PENTAZOCINE HYDROCHLORIDE [Suspect]
     Active Substance: PENTAZOCINE HYDROCHLORIDE
     Indication: PRODUCT USED FOR UNKNOWN INDICATION
     Route: 048
  34. CAFFEINE W/PARACETAMOL/PHENYLEPHRINE [Suspect]
     Active Substance: ACETAMINOPHEN\CAFFEINE\PHENYLEPHRINE HYDROCHLORIDE
     Indication: PRODUCT USED FOR UNKNOWN INDICATION
     Route: 048
  35. FUROSEMIDE. [Interacting]
     Active Substance: FUROSEMIDE
     Indication: PRODUCT USED FOR UNKNOWN INDICATION
     Route: 048
  36. LACTULOSE. [Interacting]
     Active Substance: LACTULOSE
     Dosage: 1 DF, QD
     Route: 048
  37. ESIDRIX [Suspect]
     Active Substance: HYDROCHLOROTHIAZIDE
     Indication: PRODUCT USED FOR UNKNOWN INDICATION
     Route: 048
  38. VIGANTOLETTEN [Suspect]
     Active Substance: CHOLECALCIFEROL
     Indication: PRODUCT USED FOR UNKNOWN INDICATION
     Dosage: 100 IE
     Route: 048
  39. VIGANTOLETTEN [Suspect]
     Active Substance: CHOLECALCIFEROL
     Dosage: 100 OT
     Route: 048
  40. TIOTROPIUM BROMIDE [Suspect]
     Active Substance: TIOTROPIUM BROMIDE
     Indication: PRODUCT USED FOR UNKNOWN INDICATION
     Dosage: ADDITIONAL INFO: MISUSE,MEDICATION ERROR
     Route: 055
  41. SPIRONOLACTONE. [Suspect]
     Active Substance: SPIRONOLACTONE
     Indication: PRODUCT USED FOR UNKNOWN INDICATION
     Dosage: 2 DF, QD
     Route: 048
  42. COLECALCIFEROL [Suspect]
     Active Substance: CHOLECALCIFEROL
     Indication: PRODUCT USED FOR UNKNOWN INDICATION
     Route: 048
  43. DUROGESIC SMAT [Suspect]
     Active Substance: FENTANYL
     Indication: PRODUCT USED FOR UNKNOWN INDICATION
     Dosage: 50 UG, QD
     Route: 062
  44. RAPAMUNE [Interacting]
     Active Substance: SIROLIMUS
     Route: 048
  45. NOVALGIN (METAMIZOLE SODIUM) [Interacting]
     Active Substance: METAMIZOLE SODIUM
     Route: 048
  46. MUCOSOLVAN [Interacting]
     Active Substance: AMBROXOL HYDROCHLORIDE
     Indication: PRODUCT USED FOR UNKNOWN INDICATION
     Dosage: 30 DROP (1/12 MILILITER)
     Route: 048
  47. URSOFALK [Suspect]
     Active Substance: URSODIOL
     Indication: PRODUCT USED FOR UNKNOWN INDICATION
     Route: 048
  48. SPIRIVA [Suspect]
     Active Substance: TIOTROPIUM BROMIDE MONOHYDRATE
     Indication: PRODUCT USED FOR UNKNOWN INDICATION
     Route: 055
  49. POTASSIUM CHLORIDE. [Suspect]
     Active Substance: POTASSIUM CHLORIDE
     Indication: PRODUCT USED FOR UNKNOWN INDICATION
     Route: 048
  50. POTASSIUM CHLORIDE. [Suspect]
     Active Substance: POTASSIUM CHLORIDE
     Route: 048
  51. PARACETAMOL W/PENTAZOCINE HYDROCHLORIDE [Suspect]
     Active Substance: ACETAMINOPHEN\PENTAZOCINE HYDROCHLORIDE
     Route: 048
  52. LEVOPAR [Suspect]
     Active Substance: BENSERAZIDE\LEVODOPA
     Indication: PRODUCT USED FOR UNKNOWN INDICATION
     Route: 055
  53. CAFFEINE W/PARACETAMOL/PHENYLEPHRINE [Suspect]
     Active Substance: ACETAMINOPHEN\CAFFEINE\PHENYLEPHRINE HYDROCHLORIDE
     Route: 048
  54. PANTOPRAZOLE SODIUM. [Suspect]
     Active Substance: PANTOPRAZOLE SODIUM
     Indication: PRODUCT USED FOR UNKNOWN INDICATION
     Dosage: 40 MG, QD
     Route: 048
  55. LEVOPAR [Interacting]
     Active Substance: BENSERAZIDE\LEVODOPA
     Indication: PRODUCT USED FOR UNKNOWN INDICATION
     Route: 048
  56. SIMVASTATIN. [Interacting]
     Active Substance: SIMVASTATIN
     Indication: PRODUCT USED FOR UNKNOWN INDICATION
     Dosage: 40 MG, QD
     Route: 048
  57. SPIRONOLACTON [Suspect]
     Active Substance: SPIRONOLACTONE
     Route: 048
  58. SIROLIMUS. [Suspect]
     Active Substance: SIROLIMUS
     Indication: PRODUCT USED FOR UNKNOWN INDICATION
     Route: 048
  59. URSODEOXYCHOLIC ACID [Suspect]
     Active Substance: URSODIOL
     Indication: PRODUCT USED FOR UNKNOWN INDICATION
     Dosage: 500 MG, BID
     Route: 048

REACTIONS (3)
  - Product prescribing error [Unknown]
  - Drug interaction [Unknown]
  - General physical health deterioration [Unknown]

NARRATIVE: CASE EVENT DATE: 20150916
